FAERS Safety Report 22280652 (Version 1)
Quarter: 2023Q2

REPORT INFORMATION
  Report Type: Spontaneous
  Country: US (occurrence: None)
  Receive Date: 20230502
  Receipt Date: 20230502
  Transmission Date: 20230722
  Serious: Yes (Disabling)
  Sender: FDA-Public Use
  Company Number: None

PATIENT
  Age: 30 Year
  Sex: Male
  Weight: 135 kg

DRUGS (3)
  1. CELECOXIB [Suspect]
     Active Substance: CELECOXIB
     Indication: Inflammation
     Dosage: OTHER QUANTITY : 14 CAPSULE(S);?FREQUENCY : DAILY;?
     Route: 048
     Dates: start: 20230425, end: 20230502
  2. CELECOXIB [Suspect]
     Active Substance: CELECOXIB
     Indication: Pain in extremity
  3. CELECOXIB [Suspect]
     Active Substance: CELECOXIB
     Indication: Limb injury

REACTIONS (1)
  - Erectile dysfunction [None]

NARRATIVE: CASE EVENT DATE: 20230501
